FAERS Safety Report 23408108 (Version 4)
Quarter: 2024Q3

REPORT INFORMATION
  Report Type: Spontaneous
  Country: US (occurrence: US)
  Receive Date: 20240117
  Receipt Date: 20240723
  Transmission Date: 20241017
  Serious: Yes (Other)
  Sender: CSL BEHRING
  Company Number: US-BEH-2024167470

PATIENT
  Age: 25 Year
  Sex: Male

DRUGS (16)
  1. IDELVION [Suspect]
     Active Substance: COAGULATION FACTOR IX RECOMBINANT HUMAN
     Indication: Factor IX deficiency
     Dosage: 5910 INTERNATIONAL UNIT, QW
     Route: 042
     Dates: start: 201301
  2. IDELVION [Suspect]
     Active Substance: COAGULATION FACTOR IX RECOMBINANT HUMAN
     Indication: Factor IX deficiency
     Dosage: 5910 INTERNATIONAL UNIT, QW
     Route: 042
     Dates: start: 201301
  3. IDELVION [Suspect]
     Active Substance: COAGULATION FACTOR IX RECOMBINANT HUMAN
     Indication: Gastrointestinal haemorrhage
     Dosage: 5910 INTERNATIONAL UNIT, QW
     Route: 042
     Dates: start: 201301
  4. IDELVION [Suspect]
     Active Substance: COAGULATION FACTOR IX RECOMBINANT HUMAN
     Indication: Gastrointestinal haemorrhage
     Dosage: 5910 INTERNATIONAL UNIT, QW
     Route: 042
     Dates: start: 201301
  5. IDELVION [Suspect]
     Active Substance: COAGULATION FACTOR IX RECOMBINANT HUMAN
     Indication: Haemarthrosis
     Dosage: 4 DOSES, TOT
     Route: 042
  6. IDELVION [Suspect]
     Active Substance: COAGULATION FACTOR IX RECOMBINANT HUMAN
     Indication: Haemarthrosis
     Dosage: 4 DOSES, TOT
     Route: 042
  7. IDELVION [Suspect]
     Active Substance: COAGULATION FACTOR IX RECOMBINANT HUMAN
     Indication: Haemarthrosis
     Dosage: 1 DOSAGE FORM
     Route: 065
     Dates: start: 2024
  8. IDELVION [Suspect]
     Active Substance: COAGULATION FACTOR IX RECOMBINANT HUMAN
     Indication: Haemarthrosis
     Dosage: 1 DOSAGE FORM
     Route: 065
     Dates: start: 2024
  9. IDELVION [Suspect]
     Active Substance: COAGULATION FACTOR IX RECOMBINANT HUMAN
     Indication: Factor IX deficiency
     Dosage: 5910 INTERNATIONAL UNIT, QW
     Route: 042
     Dates: start: 201301
  10. IDELVION [Suspect]
     Active Substance: COAGULATION FACTOR IX RECOMBINANT HUMAN
     Indication: Factor IX deficiency
     Dosage: 5910 INTERNATIONAL UNIT, QW
     Route: 042
     Dates: start: 201301
  11. IDELVION [Suspect]
     Active Substance: COAGULATION FACTOR IX RECOMBINANT HUMAN
     Indication: Gastrointestinal haemorrhage
     Dosage: 5910 INTERNATIONAL UNIT, QW
     Route: 042
     Dates: start: 201301
  12. IDELVION [Suspect]
     Active Substance: COAGULATION FACTOR IX RECOMBINANT HUMAN
     Indication: Gastrointestinal haemorrhage
     Dosage: 5910 INTERNATIONAL UNIT, QW
     Route: 042
     Dates: start: 201301
  13. IDELVION [Suspect]
     Active Substance: COAGULATION FACTOR IX RECOMBINANT HUMAN
     Indication: Haemarthrosis
     Dosage: 4 DOSES, TOT
     Route: 042
  14. IDELVION [Suspect]
     Active Substance: COAGULATION FACTOR IX RECOMBINANT HUMAN
     Indication: Haemarthrosis
     Dosage: 4 DOSES, TOT
     Route: 042
  15. IDELVION [Suspect]
     Active Substance: COAGULATION FACTOR IX RECOMBINANT HUMAN
     Indication: Haemarthrosis
     Dosage: 1 DOSAGE FORM
     Route: 065
     Dates: start: 2024
  16. IDELVION [Suspect]
     Active Substance: COAGULATION FACTOR IX RECOMBINANT HUMAN
     Indication: Haemarthrosis
     Dosage: 1 DOSAGE FORM
     Route: 065
     Dates: start: 2024

REACTIONS (13)
  - Gastrointestinal haemorrhage [Not Recovered/Not Resolved]
  - Haemarthrosis [Not Recovered/Not Resolved]
  - Gastrointestinal haemorrhage [Unknown]
  - Haemarthrosis [Unknown]
  - Gastrointestinal haemorrhage [Unknown]
  - Haemarthrosis [Unknown]
  - Haemarthrosis [Not Recovered/Not Resolved]
  - Haemarthrosis [Unknown]
  - Contusion [Unknown]
  - Road traffic accident [Unknown]
  - Haemorrhage [Unknown]
  - Limb injury [Unknown]
  - Back injury [Unknown]

NARRATIVE: CASE EVENT DATE: 20240101
